FAERS Safety Report 7249508-4 (Version None)
Quarter: 2011Q1

REPORT INFORMATION
  Report Type: 
  Country: None (occurrence: None)
  Receive Date: 20110128
  Receipt Date: 20101220
  Transmission Date: 20110831
  Serious: Yes (Hospitalization, Other)
  Sender: FDA-Public Use
  Company Number: US-BAYER-200935647NA

PATIENT
  Sex: Female
  Weight: 86 kg

DRUGS (3)
  1. YAZ [Suspect]
     Indication: PRODUCT USED FOR UNKNOWN INDICATION
     Route: 048
  2. TALWIN NX [Concomitant]
     Indication: PAIN MANAGEMENT
     Dosage: 1 MG, QD
     Route: 048
  3. YASMIN [Suspect]
     Indication: PRODUCT USED FOR UNKNOWN INDICATION
     Route: 048

REACTIONS (7)
  - CHEST PAIN [None]
  - THROMBOSIS [None]
  - PAIN IN EXTREMITY [None]
  - NAUSEA [None]
  - DYSPNOEA [None]
  - DIZZINESS [None]
  - PULMONARY EMBOLISM [None]
